FAERS Safety Report 6150998-9 (Version None)
Quarter: 2009Q2

REPORT INFORMATION
  Report Type: 
  Country: None (occurrence: None)
  Receive Date: 20090410
  Receipt Date: 20090211
  Transmission Date: 20091009
  Serious: No
  Sender: FDA-Public Use
  Company Number: A0767978A

PATIENT
  Age: 51 Year
  Sex: Female

DRUGS (9)
  1. TYKERB [Suspect]
     Indication: BREAST CANCER
     Dosage: 250MG FIVE TIMES PER DAY
     Route: 048
     Dates: start: 20090115
  2. PREDNISOLONE [Suspect]
     Route: 048
  3. HERCEPTIN [Concomitant]
  4. THYROXIN [Concomitant]
  5. LEXAPRO [Concomitant]
  6. PREVACID [Concomitant]
  7. HYDROCORTISONE [Concomitant]
  8. PREDNISOLONE [Concomitant]
  9. LOMOTIL [Concomitant]

REACTIONS (1)
  - VASODILATATION [None]
